FAERS Safety Report 5252548-8 (Version None)
Quarter: 2007Q1

REPORT INFORMATION
  Report Type: 
  Country: None (occurrence: None)
  Receive Date: 20070227
  Receipt Date: 20070227
  Transmission Date: 20070707
  Serious: Yes (Death, Hospitalization)
  Sender: FDA-Public Use
  Company Number: None

PATIENT
  Age: 51 Year
  Sex: Male
  Weight: 83.4619 kg

DRUGS (2)
  1. HEPARIN [Suspect]
     Indication: EMBOLISM
     Dosage: 10,000 UNITS   ONE DOSE  IV BOLUS;   HEPARIN DRIP  KO RATE  IV DRIP
     Route: 040
     Dates: start: 19981025, end: 19981025
  2. HEPARIN [Suspect]
     Indication: PNEUMONIA
     Dosage: 10,000 UNITS   ONE DOSE  IV BOLUS;   HEPARIN DRIP  KO RATE  IV DRIP
     Route: 040
     Dates: start: 19981025, end: 19981025

REACTIONS (9)
  - BLOOD PRESSURE DECREASED [None]
  - CONTRAINDICATION TO MEDICAL TREATMENT [None]
  - DYSPNOEA [None]
  - HAEMATURIA [None]
  - HAEMORRHAGE [None]
  - IATROGENIC INJURY [None]
  - LOSS OF CONSCIOUSNESS [None]
  - MOVEMENT DISORDER [None]
  - PHARYNGEAL HAEMORRHAGE [None]
